FAERS Safety Report 20486890 (Version 1)
Quarter: 2022Q1

REPORT INFORMATION
  Report Type: Report from Study
  Country: FR (occurrence: FR)
  Receive Date: 20220217
  Receipt Date: 20220217
  Transmission Date: 20220424
  Serious: Yes (Hospitalization)
  Sender: FDA-Public Use
  Company Number: FR-BoehringerIngelheim-2022-BI-153673

PATIENT
  Age: 38 Year
  Sex: Female

DRUGS (4)
  1. NINTEDANIB [Suspect]
     Active Substance: NINTEDANIB
     Indication: Cervix carcinoma
     Route: 048
     Dates: start: 20220113, end: 20220207
  2. PEMBROLIZUMAB [Suspect]
     Active Substance: PEMBROLIZUMAB
     Indication: Cervix carcinoma
     Dosage: INFUSION
     Route: 042
     Dates: start: 20220127, end: 20220207
  3. ACETAMINOPHEN [Concomitant]
     Active Substance: ACETAMINOPHEN
     Indication: Abdominal pain
     Route: 048
     Dates: start: 2021
  4. RACECADOTRIL [Concomitant]
     Active Substance: RACECADOTRIL
     Indication: Abdominal pain
     Route: 048
     Dates: start: 2021

REACTIONS (2)
  - Ischaemia [Recovered/Resolved]
  - Fistula [Recovered/Resolved]

NARRATIVE: CASE EVENT DATE: 20220207
